FAERS Safety Report 5422722-6 (Version None)
Quarter: 2007Q3

REPORT INFORMATION
  Report Type: 
  Country: None (occurrence: None)
  Receive Date: 20070820
  Receipt Date: 20070808
  Transmission Date: 20080115
  Serious: Yes (Hospitalization, Other)
  Sender: FDA-Public Use
  Company Number: 430030M07USA

PATIENT
  Age: 53 Year
  Sex: Male

DRUGS (5)
  1. NOVANTRONE [Suspect]
     Indication: ACUTE MYELOID LEUKAEMIA
     Dates: start: 20070706, end: 20070710
  2. ETOPOSIDE [Suspect]
     Dates: start: 20070706, end: 20070710
  3. CYTARABINE [Suspect]
     Dates: start: 20070706, end: 20070710
  4. CEP-701 (INVESTIGATIONAL DRUG) [Suspect]
     Dosage: 80 MG, 2 IN 1 DAYS, ORAL
     Route: 048
     Dates: start: 20070712, end: 20070726
  5. AMPHOTERICIN B [Suspect]
     Dates: start: 20070711, end: 20070714

REACTIONS (8)
  - BACTERIAL INFECTION [None]
  - BLOOD PRESSURE SYSTOLIC DECREASED [None]
  - DEHYDRATION [None]
  - HYPERNATRAEMIA [None]
  - MUCOSAL INFLAMMATION [None]
  - NEUTROPENIC SEPSIS [None]
  - ORAL INTAKE REDUCED [None]
  - RENAL FAILURE [None]
